FAERS Safety Report 22724052 (Version 2)
Quarter: 2023Q4

REPORT INFORMATION
  Report Type: Report from Study
  Country: US (occurrence: US)
  Receive Date: 20230719
  Receipt Date: 20231127
  Transmission Date: 20240109
  Serious: Yes (Other)
  Sender: FDA-Public Use
  Company Number: US-ABBVIE-4763929

PATIENT
  Sex: Female

DRUGS (18)
  1. HUMIRA [Suspect]
     Active Substance: ADALIMUMAB
     Indication: Crohn^s disease
     Dosage: CITRATE FREE? FORM STRENGTH: 40 MILLIGRAM
     Route: 058
     Dates: start: 20230329, end: 20230329
  2. HUMIRA [Suspect]
     Active Substance: ADALIMUMAB
     Dosage: FORM STRENGTH: 40 MILLIGRAM,?CITRATE FREE
     Route: 058
     Dates: start: 20230404
  3. HUMIRA [Suspect]
     Active Substance: ADALIMUMAB
     Dosage: FORM STRENGTH: 40 MILLIGRAM,?CITRATE FREE
     Route: 058
  4. ERYTHROMYCIN [Concomitant]
     Active Substance: ERYTHROMYCIN
     Indication: Product used for unknown indication
     Dosage: OPTHAMLIC OINTMENT, FORM STRENGTH: 3.5 GRAM
     Route: 065
  5. METOCLOPRAMIDE [Concomitant]
     Active Substance: METOCLOPRAMIDE
     Indication: Product used for unknown indication
     Dosage: PRN,  FORM STRENGTH: 5 MILLIGRAM, FREQUENCY TEXT: PRN
     Route: 048
  6. TRAMADOL [Concomitant]
     Active Substance: TRAMADOL\TRAMADOL HYDROCHLORIDE
     Indication: Pain
     Dosage: FORM STRENGTH: 50 MILLIGRAM
     Route: 048
  7. THERAWORX RELIEF [Concomitant]
     Indication: Systemic lupus erythematosus
     Dosage: THERAWORX JOINT RELIEF FOAM
     Route: 065
  8. VALACYCLOVIR [Concomitant]
     Active Substance: VALACYCLOVIR HYDROCHLORIDE
     Indication: Product used for unknown indication
     Dosage: TIME INTERVAL: 0.33333333 DAYS: FORM STRENGTH: 500 MILLIGRAM
     Route: 065
  9. TYLENOL [Concomitant]
     Active Substance: ACETAMINOPHEN
     Indication: Product used for unknown indication
     Dosage: FORM STRENGTH: 500 MILLIGRAM, FREQUENCY TEXT: 3 TABS PRN
     Route: 048
  10. ZYRTEC [Concomitant]
     Active Substance: CETIRIZINE HYDROCHLORIDE
     Indication: Product used for unknown indication
     Dosage: FORM STRENGTH: 10 MILLIGRAM
     Route: 048
  11. PANTOPRAZOLE [Concomitant]
     Active Substance: PANTOPRAZOLE
     Indication: Product used for unknown indication
     Dosage: FORM STRENGTH: 40 MILLIGRAM
     Route: 048
  12. BENADRYL [Concomitant]
     Active Substance: DIPHENHYDRAMINE HYDROCHLORIDE
     Indication: Product used for unknown indication
     Dosage: FORM STRENGTH: 25 MILLIGRAM, FREQUENCY TEXT: 2 TABS PRN
     Route: 048
  13. AMMONIUM LACTATE [Concomitant]
     Active Substance: AMMONIUM LACTATE
     Indication: Systemic lupus erythematosus rash
     Dosage: FORM STRENGTH: 12 PERCENT
     Route: 061
  14. UBRELVY [Concomitant]
     Active Substance: UBROGEPANT
     Indication: Product used for unknown indication
     Dosage: FORM STRENGTH: 50 MILLIGRAM, FREQUENCY TEXT: PRN
     Route: 048
  15. INSULIN ASPART [Concomitant]
     Active Substance: INSULIN ASPART
     Indication: Product used for unknown indication
     Route: 065
  16. MYCOPHENOLIC ACID [Concomitant]
     Active Substance: MYCOPHENOLIC ACID
     Indication: Product used for unknown indication
     Dosage: FORM STRENGTH: 500 MILLIGRAM, FREQUENCY TEXT: 2 TABS BID
     Route: 048
  17. LISINOPRIL [Concomitant]
     Active Substance: LISINOPRIL
     Indication: Product used for unknown indication
     Dosage: FORM STRENGTH: 10 MILLIGRAM
     Route: 048
  18. SLYND [Concomitant]
     Active Substance: DROSPIRENONE
     Indication: Product used for unknown indication
     Dosage: SLYND 28S,  FORM STRENGTH: 4 MILLIGARM
     Route: 065

REACTIONS (11)
  - Lupus-like syndrome [Recovering/Resolving]
  - Keratopathy [Unknown]
  - Endometriosis [Unknown]
  - Type 1 diabetes mellitus [Unknown]
  - Retinopathy [Unknown]
  - Anaemia [Unknown]
  - Coeliac disease [Unknown]
  - Impaired gastric emptying [Unknown]
  - Neuropathy peripheral [Unknown]
  - Acute coronary syndrome [Unknown]
  - Eye disorder [Not Recovered/Not Resolved]

NARRATIVE: CASE EVENT DATE: 20230101
